FAERS Safety Report 12742238 (Version 1)
Quarter: 2016Q3

REPORT INFORMATION
  Report Type: Report from Study
  Country: US (occurrence: US)
  Receive Date: 20160914
  Receipt Date: 20160914
  Transmission Date: 20161109
  Serious: Yes (Hospitalization)
  Sender: FDA-Public Use
  Company Number: US-MALLINCKRODT-T201604241

PATIENT
  Age: 55 Year
  Sex: Male

DRUGS (1)
  1. REPOSITORY CORTICOTROPIN INJECTION [Suspect]
     Active Substance: CORTICOTROPIN
     Indication: SARCOIDOSIS
     Dosage: 80 UNITS EVERY 3 DAYS (72HRS)
     Route: 058
     Dates: start: 20160407

REACTIONS (3)
  - Cold sweat [Unknown]
  - Pneumonia [Unknown]
  - Pleural infection [Unknown]

NARRATIVE: CASE EVENT DATE: 20160827
